FAERS Safety Report 5347154-0 (Version None)
Quarter: 2007Q2

REPORT INFORMATION
  Report Type: 
  Country: None (occurrence: None)
  Receive Date: 20070604
  Receipt Date: 20070604
  Transmission Date: 20071010
  Serious: No
  Sender: FDA-Public Use
  Company Number: None

PATIENT

DRUGS (2)
  1. SCOPOLAMINE HYDROBROMIDE 0.4MG/ML INJECTION -1ML AMERICAN PHARMACEUTIC [Suspect]
  2. GLYCOPYRROLATE 0.2MG/ML INJECTION -1 ML AMERICAN REGENT [Suspect]

REACTIONS (2)
  - INTERCEPTED DRUG DISPENSING ERROR [None]
  - MEDICATION ERROR [None]
